FAERS Safety Report 13130411 (Version 9)
Quarter: 2017Q2

REPORT INFORMATION
  Report Type: Report from Study
  Country: US (occurrence: US)
  Receive Date: 20170119
  Receipt Date: 20170629
  Transmission Date: 20170830
  Serious: Yes (Other)
  Sender: FDA-Public Use
  Company Number: US-PFIZER INC-2016596808

PATIENT
  Age: 63 Year
  Sex: Female

DRUGS (4)
  1. IBRANCE [Suspect]
     Active Substance: PALBOCICLIB
     Dosage: 100 MG, CYCLIC (21 DAYS OFF 7 DAYS OF 28 DAY CYCLE)
     Route: 048
  2. IBRANCE [Suspect]
     Active Substance: PALBOCICLIB
     Indication: BREAST CANCER METASTATIC
     Dosage: 125 MG, CYCLIC, (DAILY; 2 WEEK ON AND 2 WEEK OFF)
     Route: 048
     Dates: start: 20161212, end: 20170101
  3. IBRANCE [Suspect]
     Active Substance: PALBOCICLIB
     Dosage: 100 MG, CYCLIC (DAILY; 2 WEEKS ON AND 1 WEEK OFF)
     Route: 048
     Dates: start: 20170507
  4. IBRANCE [Suspect]
     Active Substance: PALBOCICLIB
     Dosage: 125 MG, CYCLIC (DAILY; 2 WEEK ON AND 1 WEEK OFF)
     Route: 048
     Dates: start: 20170202, end: 20170422

REACTIONS (16)
  - Vocal cord paralysis [Recovering/Resolving]
  - Insomnia [Recovering/Resolving]
  - Secretion discharge [Recovering/Resolving]
  - Epistaxis [Recovered/Resolved]
  - Constipation [Recovered/Resolved]
  - Thrombocytopenia [Unknown]
  - Infection [Recovering/Resolving]
  - Cough [Recovering/Resolving]
  - Stomatitis [Recovered/Resolved]
  - Abdominal discomfort [Unknown]
  - Oropharyngeal pain [Recovering/Resolving]
  - Weight decreased [Recovering/Resolving]
  - Fatigue [Recovering/Resolving]
  - Hypophagia [Recovering/Resolving]
  - Bone marrow failure [Recovered/Resolved]
  - Bronchitis [Recovered/Resolved]
